FAERS Safety Report 7560815-8 (Version None)
Quarter: 2011Q2

REPORT INFORMATION
  Report Type: 
  Country: None (occurrence: None)
  Receive Date: 20110621
  Receipt Date: 20110607
  Transmission Date: 20111010
  Serious: Yes (Hospitalization)
  Sender: FDA-Public Use
  Company Number: US-ROCHE-783767

PATIENT
  Age: 32 Year
  Sex: Female
  Weight: 64.7 kg

DRUGS (6)
  1. DULOXETIME HYDROCHLORIDE [Suspect]
     Route: 065
  2. PREDNISONE [Concomitant]
  3. FEXOFENADINE [Suspect]
     Route: 065
  4. LANSOPRAZOLE [Suspect]
     Route: 065
  5. FOLIC ACID [Concomitant]
  6. BEVACIZUMAB [Suspect]
     Indication: NEUROFIBROMATOSIS
     Dosage: FREQUENCY: 7.5 MG/KG IV OVER 30-90 MINS Q3WEEKS TOTAL DOSE: 492 MG  LAST DOSE PRIOR TO SAE: 1 FEB 11
     Route: 042
     Dates: start: 20101109

REACTIONS (1)
  - IDIOPATHIC THROMBOCYTOPENIC PURPURA [None]
